FAERS Safety Report 23391979 (Version 1)
Quarter: 2024Q1

REPORT INFORMATION
  Report Type: Other
  Country: US (occurrence: None)
  Receive Date: 20240111
  Receipt Date: 20240111
  Transmission Date: 20240410
  Serious: Yes (Other)
  Sender: FDA-Public Use
  Company Number: US-ROCHE-3486628

PATIENT
  Age: 12 Year
  Sex: Male

DRUGS (1)
  1. HEMLIBRA [Suspect]
     Active Substance: EMICIZUMAB-KXWH
     Indication: Factor VIII deficiency
     Dosage: THERAPY ONGOING
     Route: 065
     Dates: start: 2018

REACTIONS (4)
  - Haemarthrosis [Recovered/Resolved]
  - Migraine [Recovering/Resolving]
  - Injection site bruising [Recovered/Resolved]
  - Incorrect dose administered [Unknown]
